FAERS Safety Report 9407231 (Version 2)
Quarter: 2013Q3

REPORT INFORMATION
  Report Type: Spontaneous
  Country: US (occurrence: US)
  Receive Date: 20130718
  Receipt Date: 20130902
  Transmission Date: 20140515
  Serious: Yes (Congenital Anomaly, Other)
  Sender: FDA-Public Use
  Company Number: US-PFIZER INC-2013208819

PATIENT
  Sex: Female

DRUGS (4)
  1. SERTRALINE HCL [Suspect]
     Dosage: UNK
     Route: 064
     Dates: start: 201102
  2. PRENATAL VITAMINS [Concomitant]
     Dosage: UNK
     Route: 064
  3. IRON [Concomitant]
     Dosage: UNK
     Route: 064
  4. TYLENOL [Concomitant]
     Dosage: UNK
     Route: 064

REACTIONS (7)
  - Maternal exposure during pregnancy [Unknown]
  - Microcephaly [Unknown]
  - Trichorhinophalangeal syndrome [Unknown]
  - Congenital hydrocephalus [Unknown]
  - Macrocephaly [Unknown]
  - Torticollis [Unknown]
  - Hypotonia [Unknown]
